FAERS Safety Report 6895449-1 (Version None)
Quarter: 2010Q3

REPORT INFORMATION
  Report Type: 
  Country: None (occurrence: None)
  Receive Date: 20100802
  Receipt Date: 20100726
  Transmission Date: 20110219
  Serious: Yes (Other)
  Sender: FDA-Public Use
  Company Number: US-CVT-100469

PATIENT

DRUGS (10)
  1. RANEXA [Suspect]
     Indication: ANGINA PECTORIS
     Dosage: 500 MG, BID
     Route: 048
  2. ACTOS [Concomitant]
  3. LANTUS [Concomitant]
  4. DIOVAN /01319601/ [Concomitant]
  5. HYDROCODONE BITARTRATE [Concomitant]
  6. GABAPENTIN [Concomitant]
  7. LEXAPRO [Concomitant]
  8. LEVOTHYROXINE                      /00068001/ [Concomitant]
  9. FUROSEMIDE                         /00032601/ [Concomitant]
  10. CARVEDILOL [Concomitant]

REACTIONS (5)
  - DIARRHOEA [None]
  - DYSKINESIA [None]
  - HALLUCINATION [None]
  - NAUSEA [None]
  - VOMITING [None]
